FAERS Safety Report 7202461-1 (Version None)
Quarter: 2010Q4

REPORT INFORMATION
  Report Type: 
  Country: None (occurrence: None)
  Receive Date: 20101229
  Receipt Date: 20101217
  Transmission Date: 20110411
  Serious: Yes (Other)
  Sender: FDA-Public Use
  Company Number: B0690167A

PATIENT
  Sex: Male
  Weight: 79 kg

DRUGS (14)
  1. ALKERAN [Suspect]
     Indication: STEM CELL TRANSPLANT
     Dosage: 125MG PER DAY
     Route: 042
     Dates: start: 20090726, end: 20090727
  2. CYMERIN [Suspect]
     Indication: STEM CELL TRANSPLANT
     Dosage: 536MG PER DAY
     Route: 042
     Dates: start: 20090721, end: 20090721
  3. ETOPOSIDE [Suspect]
     Indication: STEM CELL TRANSPLANT
     Dosage: 356MG PER DAY
     Route: 065
     Dates: start: 20090722, end: 20090725
  4. CYLOCIDE [Suspect]
     Indication: STEM CELL TRANSPLANT
     Dosage: 714MG PER DAY
     Route: 042
     Dates: start: 20090722, end: 20090725
  5. NEUTROGIN [Concomitant]
     Route: 058
     Dates: start: 20090731, end: 20090806
  6. ZOVIRAX [Concomitant]
     Dosage: 1000MG PER DAY
     Route: 048
     Dates: start: 20090725, end: 20090812
  7. CRAVIT [Concomitant]
     Dosage: 300MG PER DAY
     Route: 048
     Dates: start: 20090725, end: 20090730
  8. DIFLUCAN [Concomitant]
     Dosage: 200MG PER DAY
     Route: 048
     Dates: start: 20090725, end: 20090812
  9. GASTER [Concomitant]
     Dosage: 40MG PER DAY
     Route: 048
     Dates: start: 20090725, end: 20090812
  10. ALLEGRA [Concomitant]
     Dosage: 60MG PER DAY
     Route: 048
     Dates: start: 20090725, end: 20090730
  11. URSO 250 [Concomitant]
     Dosage: 300MG PER DAY
     Route: 048
     Dates: start: 20090725, end: 20090812
  12. ALOSITOL [Concomitant]
     Dosage: 300MG PER DAY
     Route: 048
     Dates: start: 20090725, end: 20090727
  13. BERBERINE CHLORIDE [Concomitant]
     Dosage: 6IUAX PER DAY
     Route: 048
     Dates: start: 20090731, end: 20090810
  14. FIRSTCIN [Concomitant]
     Dosage: 2G PER DAY
     Route: 042
     Dates: start: 20090731, end: 20090807

REACTIONS (5)
  - ALANINE AMINOTRANSFERASE INCREASED [None]
  - ASPARTATE AMINOTRANSFERASE INCREASED [None]
  - BLOOD BILIRUBIN INCREASED [None]
  - DIARRHOEA [None]
  - HEPATIC FUNCTION ABNORMAL [None]
